FAERS Safety Report 7437020-9 (Version None)
Quarter: 2011Q2

REPORT INFORMATION
  Report Type: 
  Country: None (occurrence: None)
  Receive Date: 20110421
  Receipt Date: 20110421
  Transmission Date: 20111010
  Serious: Yes (Other)
  Sender: FDA-Public Use
  Company Number: None

PATIENT
  Sex: Female
  Weight: 67.586 kg

DRUGS (1)
  1. CARTIA XT [Suspect]
     Indication: HYPERTENSION
     Dosage: 240MG ONE QAM ORAL
     Route: 048
     Dates: start: 20110303, end: 20110327

REACTIONS (5)
  - FREQUENT BOWEL MOVEMENTS [None]
  - NAUSEA [None]
  - RASH [None]
  - ERUCTATION [None]
  - DYSPEPSIA [None]
